FAERS Safety Report 22333051 (Version 1)
Quarter: 2023Q2

REPORT INFORMATION
  Report Type: Spontaneous
  Country: US (occurrence: US)
  Receive Date: 20230517
  Receipt Date: 20230517
  Transmission Date: 20230722
  Serious: No
  Sender: FDA-Public Use
  Company Number: US-SA-SAC20230516000119

PATIENT
  Age: 22 Year
  Sex: Male

DRUGS (6)
  1. DUPIXENT [Suspect]
     Active Substance: DUPILUMAB
     Indication: Dermatitis atopic
     Dosage: 300 MG, QOW
     Route: 058
     Dates: start: 20221018
  2. IBUPROFEN [Concomitant]
     Active Substance: IBUPROFEN
  3. PIMECROLIMUS [Concomitant]
     Active Substance: PIMECROLIMUS
  4. TACROLIMUS [Concomitant]
     Active Substance: TACROLIMUS
  5. BETAMETH DIPROPIONATE [Concomitant]
  6. HYDROCORTISONE ACETATE [Concomitant]
     Active Substance: HYDROCORTISONE ACETATE

REACTIONS (3)
  - Eczema [Not Recovered/Not Resolved]
  - Discomfort [Not Recovered/Not Resolved]
  - Sleep disorder [Not Recovered/Not Resolved]

NARRATIVE: CASE EVENT DATE: 20230401
